FAERS Safety Report 9408386 (Version 2)
Quarter: 2014Q1

REPORT INFORMATION
  Report Type: Report from Study
  Country: IT (occurrence: IT)
  Receive Date: 20130718
  Receipt Date: 20140213
  Transmission Date: 20141002
  Serious: Yes (Death)
  Sender: FDA-Public Use
  Company Number: IT-AMGEN-ITACT2013050493

PATIENT
  Age: 72 Year
  Sex: Female

DRUGS (5)
  1. DENOSUMAB [Suspect]
     Indication: METASTASES TO BONE
     Route: 065
  2. DENOSUMAB [Suspect]
     Indication: BREAST CANCER
  3. METFORMIN [Concomitant]
  4. MEGACE [Concomitant]
  5. PARACETAMOL [Concomitant]

REACTIONS (1)
  - Disease progression [Fatal]
